FAERS Safety Report 14301831 (Version 2)
Quarter: 2017Q4

REPORT INFORMATION
  Report Type: Report from Study
  Country: MX (occurrence: MX)
  Receive Date: 20171219
  Receipt Date: 20171222
  Transmission Date: 20180321
  Serious: Yes (Death, Other)
  Sender: FDA-Public Use
  Company Number: MX-009507513-1712MEX006625

PATIENT
  Age: 40 Year
  Sex: Male
  Weight: 96 kg

DRUGS (1)
  1. GRAZOPREVIR (+) ELBASVIR [Suspect]
     Active Substance: ELBASVIR\GRAZOPREVIR
     Indication: LIVER DISORDER
     Dosage: STRENGTH AND DOSE: 100/50 MG, PLANNED AS 12 WEEKS TREATMENT
     Route: 048
     Dates: start: 20170925, end: 2017

REACTIONS (2)
  - Diabetes mellitus [Unknown]
  - Chronic kidney disease [Fatal]

NARRATIVE: CASE EVENT DATE: 2017
